FAERS Safety Report 16094379 (Version 18)
Quarter: 2021Q2

REPORT INFORMATION
  Report Type: Spontaneous
  Country: US (occurrence: US)
  Receive Date: 20190320
  Receipt Date: 20210614
  Transmission Date: 20210716
  Serious: Yes (Death, Other)
  Sender: FDA-Public Use
  Company Number: US-PFIZER INC-2017242206

PATIENT
  Age: 66 Year
  Sex: Male
  Weight: 94 kg

DRUGS (13)
  1. LYRICA [Suspect]
     Active Substance: PREGABALIN
     Indication: DIABETIC NEUROPATHY
     Dosage: 200 MG, 3X/DAY
     Route: 048
     Dates: start: 20170501, end: 2017
  2. SIMVASTATIN. [Concomitant]
     Active Substance: SIMVASTATIN
     Dosage: UNK
     Dates: start: 2010
  3. GLUCOPHAGE [Concomitant]
     Active Substance: METFORMIN HYDROCHLORIDE
     Dosage: 1000 MG, 2X/DAY
     Route: 048
     Dates: start: 20170320
  4. VENTOLIN HFA [Concomitant]
     Active Substance: ALBUTEROL SULFATE
     Dosage: 216 UG, AS NEEDED (INHALE 2 PUFFS EVERY FOUR HOURS AS NEEDED)
     Route: 055
     Dates: start: 20170320
  5. LYRICA [Suspect]
     Active Substance: PREGABALIN
     Indication: DIABETIC MONONEUROPATHY
     Dosage: 200 MG, 3X/DAY
     Route: 048
     Dates: start: 20171115
  6. LYRICA [Suspect]
     Active Substance: PREGABALIN
     Indication: NEUROPATHY PERIPHERAL
     Dosage: 200 MG, 3X/DAY
     Route: 048
  7. SEROQUEL [Concomitant]
     Active Substance: QUETIAPINE FUMARATE
     Dosage: 600 MG, DAILY (TOTAL ONE 200 MG TABLET TAKE WITH ONE 400 MG TABLET), ONCE A DAY AT BEDTIME
     Route: 048
     Dates: start: 20170320
  8. ZOCOR [Concomitant]
     Active Substance: SIMVASTATIN
     Dosage: 20 MG, UNK
     Route: 048
     Dates: start: 20170320
  9. LEVEMIR [Concomitant]
     Active Substance: INSULIN DETEMIR
     Dosage: UNK
  10. METFORMIN [Concomitant]
     Active Substance: METFORMIN HYDROCHLORIDE
     Indication: DIABETES MELLITUS
     Dosage: UNK
     Dates: start: 2010
  11. VIAGRA [Concomitant]
     Active Substance: SILDENAFIL CITRATE
     Indication: ERECTILE DYSFUNCTION
     Dosage: 100 MG, AS NEEDED (DAILY)
     Route: 048
  12. CIALIS [Concomitant]
     Active Substance: TADALAFIL
     Indication: SEXUAL DYSFUNCTION
     Dosage: 20 MG, AS NEEDED DAILY (TAKE 45?60 MIN PRIOR TO SEXUAL ACTIVITY, NOT TAKE MORE THAN ONCE IN 48 HRS)
     Route: 048
     Dates: start: 20170327
  13. LYRICA [Suspect]
     Active Substance: PREGABALIN
     Indication: SPINAL STENOSIS
     Dosage: 200 MG, 3X/DAY
     Route: 048

REACTIONS (10)
  - Sensation of foreign body [Unknown]
  - Polyp [Unknown]
  - Throat irritation [Unknown]
  - Pain [Unknown]
  - Dementia [Unknown]
  - Death [Fatal]
  - Amputee [Unknown]
  - Cough [Unknown]
  - Prescription drug used without a prescription [Unknown]
  - Choking [Unknown]

NARRATIVE: CASE EVENT DATE: 2018
